FAERS Safety Report 4426150-1 (Version None)
Quarter: 2004Q3

REPORT INFORMATION
  Report Type: 
  Country: None (occurrence: None)
  Receive Date: 20040811
  Receipt Date: 20040727
  Transmission Date: 20050211
  Serious: Yes (Hospitalization)
  Sender: FDA-Public Use
  Company Number: US-2004-027078

PATIENT
  Age: 53 Year
  Sex: Female
  Weight: 57.1 kg

DRUGS (18)
  1. BETASERON [Suspect]
     Indication: MULTIPLE SCLEROSIS
     Dosage: 8 MIU, EVERY 2D, SUBCUTANEOUS
     Route: 058
     Dates: start: 20040506, end: 20040611
  2. COUMADIN [Concomitant]
  3. NEXIUM [Concomitant]
  4. ESOMEPRAZOLE [Concomitant]
  5. PERCOCET [Concomitant]
  6. CYTOTEC [Concomitant]
  7. CALCIUM (CALCIUM) [Concomitant]
  8. VITAMIN A [Concomitant]
  9. LEXAPRO [Concomitant]
  10. ULTRAVETE (ULOBETASOL PROPIONATE) [Concomitant]
  11. LORTAB (HYDROCDONE BITARTRATE) [Concomitant]
  12. BEXTRA [Concomitant]
  13. CLORAZEPATE (CLORASEPATE DIPOTASSIUM) [Concomitant]
  14. SONATA [Concomitant]
  15. CALAN - SLOW RELEASE [Concomitant]
  16. ZANAFELX (TIZANIDINE HYDROCHLORIDE) [Concomitant]
  17. HORMONES AND RELATED AGENTS [Concomitant]
  18. PROVIGIL [Concomitant]

REACTIONS (13)
  - BLOOD CALCIUM DECREASED [None]
  - COMPLEX PARTIAL SEIZURES [None]
  - COMPUTERISED TOMOGRAM ABNORMAL [None]
  - CONVULSIVE THRESHOLD LOWERED [None]
  - DRY SKIN [None]
  - FEELING DRUNK [None]
  - HEADACHE [None]
  - INTERNATIONAL NORMALISED RATIO INCREASED [None]
  - LIVER DISORDER [None]
  - LOSS OF CONSCIOUSNESS [None]
  - NODULE [None]
  - PRURITUS [None]
  - URINARY TRACT INFECTION [None]
